FAERS Safety Report 4761861-X (Version None)
Quarter: 2005Q3

REPORT INFORMATION
  Report Type: 
  Country: None (occurrence: None)
  Receive Date: 20050906
  Receipt Date: 20050802
  Transmission Date: 20060218
  Serious: Yes (Disabling)
  Sender: FDA-Public Use
  Company Number: US-ROCHE-413009

PATIENT
  Age: 50 Year
  Sex: Female
  Weight: 81.6 kg

DRUGS (4)
  1. BONIVA [Suspect]
     Indication: OSTEOPOROSIS
     Route: 048
     Dates: start: 20050801
  2. ACCUPRIL [Concomitant]
     Indication: HYPERTENSION
     Dosage: PATIENT WAS RECEIIVING IT FOR TEN YEARS
     Route: 048
  3. AMBIEN [Concomitant]
     Indication: SOMNOLENCE
     Dosage: DOSAGE REGIMEN REPORTED AS HS PRN
     Route: 048
  4. XANAX [Concomitant]

REACTIONS (6)
  - DIARRHOEA [None]
  - INFLUENZA LIKE ILLNESS [None]
  - NAUSEA [None]
  - PAIN IN EXTREMITY [None]
  - PYREXIA [None]
  - RASH [None]
